FAERS Safety Report 25176648 (Version 4)
Quarter: 2025Q3

REPORT INFORMATION
  Report Type: Report from Study
  Country: AR (occurrence: AR)
  Receive Date: 20250409
  Receipt Date: 20250813
  Transmission Date: 20251021
  Serious: Yes (Other)
  Sender: GLAXOSMITHKLINE
  Company Number: AR-GSK-AR2024AMR133408

PATIENT
  Sex: Female

DRUGS (2)
  1. NIRAPARIB [Suspect]
     Active Substance: NIRAPARIB
     Indication: Product used for unknown indication
     Dosage: 200 MG, QD
  2. NIRAPARIB [Suspect]
     Active Substance: NIRAPARIB
     Dosage: 100 MG, QD

REACTIONS (12)
  - Aortic arteriosclerosis [Unknown]
  - Nephrolithiasis [Unknown]
  - Umbilical hernia [Unknown]
  - Peripheral swelling [Unknown]
  - Illness [Unknown]
  - Influenza [Unknown]
  - Constipation [Unknown]
  - Hypersensitivity [Unknown]
  - Renal cyst [Unknown]
  - Spinal osteoarthritis [Unknown]
  - Stress [Unknown]
  - Abdominal adhesions [Unknown]
